FAERS Safety Report 9479657 (Version 2)
Quarter: 2013Q3

REPORT INFORMATION
  Report Type: Report from Study
  Country: JP (occurrence: JP)
  Receive Date: 20130827
  Receipt Date: 20130827
  Transmission Date: 20140515
  Serious: Yes (Hospitalization, Other)
  Sender: FDA-Public Use
  Company Number: PHHO2009JP04173

PATIENT
  Age: 64 Year
  Sex: Female
  Weight: 57 kg

DRUGS (10)
  1. ALISKIREN [Suspect]
     Indication: CARDIOVASCULAR DISORDER
     Route: 048
     Dates: start: 20080624, end: 20080707
  2. ALISKIREN [Suspect]
     Route: 048
     Dates: start: 20081216, end: 20111222
  3. INSULIN HUMAN [Concomitant]
     Indication: DIABETES MELLITUS
  4. LIPIDIL [Concomitant]
     Indication: HYPERLIPIDAEMIA
     Dosage: 160 MG, UNK
     Dates: start: 20130107
  5. CARDENALIN [Concomitant]
     Indication: HYPERTENSION
  6. MICARDIS [Concomitant]
     Indication: HYPERTENSION
  7. BISACODYL [Concomitant]
     Indication: CONSTIPATION
  8. ASGEN [Concomitant]
     Indication: SEASONAL ALLERGY
     Dates: start: 20090205, end: 20090331
  9. NOVORAPID [Concomitant]
     Indication: DIABETES MELLITUS
  10. LANTUS [Concomitant]
     Indication: DIABETES MELLITUS

REACTIONS (18)
  - Colon adenoma [Unknown]
  - Rectal adenoma [Unknown]
  - Diabetes mellitus [Recovering/Resolving]
  - Glycosylated haemoglobin increased [Recovering/Resolving]
  - Nutritional condition abnormal [Recovering/Resolving]
  - Abdominal pain [Recovering/Resolving]
  - Fall [Unknown]
  - Mucosal inflammation [Unknown]
  - Contusion [Unknown]
  - Pain [Unknown]
  - Eczema [Unknown]
  - Gastritis [Unknown]
  - Large intestine polyp [Recovered/Resolved]
  - Haematochezia [Recovered/Resolved]
  - Malaise [Recovered/Resolved]
  - Nasopharyngitis [Recovering/Resolving]
  - Pyrexia [Recovering/Resolving]
  - Blood glucose decreased [Unknown]
